FAERS Safety Report 9199086 (Version 1)
Quarter: 2013Q1

REPORT INFORMATION
  Report Type: Spontaneous
  Country: US (occurrence: US)
  Receive Date: 20130329
  Receipt Date: 20130329
  Transmission Date: 20140127
  Serious: Yes (Disabling)
  Sender: FDA-Public Use
  Company Number: US-009507513-1102USA00679

PATIENT
  Sex: Male

DRUGS (2)
  1. PROPECIA [Suspect]
     Indication: ALOPECIA
     Route: 048
     Dates: start: 2006
  2. PROSCAR [Suspect]
     Route: 048
     Dates: start: 201009, end: 201012

REACTIONS (2)
  - Male sexual dysfunction [Unknown]
  - Anxiety [Unknown]
